FAERS Safety Report 10094734 (Version 1)
Quarter: 2014Q2

REPORT INFORMATION
  Report Type: Spontaneous
  Country: US (occurrence: None)
  Receive Date: 20140411
  Receipt Date: 20140411
  Transmission Date: 20141212
  Serious: Yes (Hospitalization, Other)
  Sender: FDA-Public Use
  Company Number: 2014US003073

PATIENT
  Age: 61 Year
  Sex: Female

DRUGS (1)
  1. PONATINIB (AP24534) TABLET [Suspect]
     Indication: PRODUCT USED FOR UNKNOWN INDICATION
     Dosage: , ORAL

REACTIONS (1)
  - Cerebrovascular accident [None]
